FAERS Safety Report 14307335 (Version 1)
Quarter: 2017Q4

REPORT INFORMATION
  Report Type: Report from Study
  Country: US (occurrence: US)
  Receive Date: 20171220
  Receipt Date: 20171220
  Transmission Date: 20180321
  Serious: No
  Sender: FDA-Public Use
  Company Number: PHEH2017US041098

PATIENT
  Sex: Female

DRUGS (3)
  1. AFINITOR [Suspect]
     Active Substance: EVEROLIMUS
     Indication: BREAST CANCER FEMALE
     Dosage: 7.5 MG, QD
     Route: 048
  2. AFINITOR [Suspect]
     Active Substance: EVEROLIMUS
     Indication: BONE CANCER
  3. AFINITOR [Suspect]
     Active Substance: EVEROLIMUS
     Indication: MALIGNANT HISTIOCYTOSIS

REACTIONS (3)
  - Dry skin [Unknown]
  - Swelling [Unknown]
  - Product use in unapproved indication [Unknown]
